FAERS Safety Report 6706749-X (Version None)
Quarter: 2010Q2

REPORT INFORMATION
  Report Type: 
  Country: None (occurrence: None)
  Receive Date: 20100503
  Receipt Date: 20100423
  Transmission Date: 20101027
  Serious: Yes (Other)
  Sender: FDA-Public Use
  Company Number: JP-PFIZER INC-2010048206

PATIENT
  Age: 68 Year
  Sex: Female

DRUGS (3)
  1. AMLODIN [Suspect]
     Indication: HYPERTENSION
     Route: 048
  2. HERBESSER R [Interacting]
  3. VALSARTAN [Interacting]
     Dosage: UNK

REACTIONS (4)
  - CARDIO-RESPIRATORY ARREST [None]
  - DRUG INTERACTION [None]
  - HYPERGLYCAEMIA [None]
  - OVERDOSE [None]
